FAERS Safety Report 5873779-X (Version None)
Quarter: 2008Q3

REPORT INFORMATION
  Report Type: 
  Country: None (occurrence: None)
  Receive Date: 20080903
  Receipt Date: 20080903
  Transmission Date: 20090109
  Serious: Yes (Hospitalization)
  Sender: FDA-Public Use
  Company Number: None

PATIENT
  Sex: Male
  Weight: 134.8 kg

DRUGS (3)
  1. CASODEX [Suspect]
     Dosage: 7050 MG
  2. TAXOTERE [Suspect]
     Dosage: 197.25 MG
  3. PREDNISONE [Suspect]
     Dosage: 130 MG

REACTIONS (6)
  - ATELECTASIS [None]
  - DIARRHOEA [None]
  - FEBRILE NEUTROPENIA [None]
  - LYMPHOPENIA [None]
  - NAUSEA [None]
  - WHITE BLOOD CELL COUNT DECREASED [None]
